FAERS Safety Report 22696075 (Version 3)
Quarter: 2024Q4

REPORT INFORMATION
  Report Type: Report from Study
  Country: IN (occurrence: IN)
  Receive Date: 20230712
  Receipt Date: 20241213
  Transmission Date: 20250115
  Serious: Yes (Hospitalization, Other)
  Sender: NOVARTIS
  Company Number: IN-002147023-NVSC2023IN154503

PATIENT
  Age: 57 Year
  Sex: Male

DRUGS (7)
  1. MYFORTIC [Suspect]
     Active Substance: MYCOPHENOLATE SODIUM
     Indication: Renal transplant
     Dosage: 720 MG, QD (360 MG BID)
     Route: 048
     Dates: start: 20230521
  2. MYFORTIC [Suspect]
     Active Substance: MYCOPHENOLATE SODIUM
     Dosage: 2 MG, BID
     Route: 048
  3. MYFORTIC [Suspect]
     Active Substance: MYCOPHENOLATE SODIUM
     Dosage: 360 MG, BID
     Route: 048
  4. MYFORTIC [Suspect]
     Active Substance: MYCOPHENOLATE SODIUM
     Dosage: 720 MG, QD (360 MG, BID)
     Route: 048
  5. TACROLIMUS [Suspect]
     Active Substance: TACROLIMUS
     Indication: Renal transplant
     Dosage: 4 MG, QD (2 MG BID)
     Route: 048
     Dates: start: 20230521
  6. TACROLIMUS [Suspect]
     Active Substance: TACROLIMUS
     Dosage: 2 MG, BID
     Route: 048
  7. TACROLIMUS [Suspect]
     Active Substance: TACROLIMUS
     Dosage: 2.5 MG, OTHER (1MG (M) AND 1.5MG (N))
     Route: 048

REACTIONS (6)
  - Renal tubular necrosis [Recovered/Resolved]
  - Urine output decreased [Recovered/Resolved]
  - Renal disorder [Recovered/Resolved]
  - Renal function test abnormal [Recovered/Resolved]
  - Cough [Unknown]
  - Hypertension [Unknown]

NARRATIVE: CASE EVENT DATE: 20230604
